FAERS Safety Report 17661367 (Version 2)
Quarter: 2020Q2

REPORT INFORMATION
  Report Type: Report from Study
  Country: US (occurrence: US)
  Receive Date: 20200413
  Receipt Date: 20200414
  Transmission Date: 20200713
  Serious: Yes (Other)
  Sender: FDA-Public Use
  Company Number: US-GLAXOSMITHKLINE-US2020AMR062874

PATIENT
  Age: 77 Year
  Sex: Female

DRUGS (1)
  1. NIRAPARIB [Suspect]
     Active Substance: NIRAPARIB
     Indication: PRODUCT USED FOR UNKNOWN INDICATION
     Dosage: 100 MG, BID
     Dates: start: 20200314, end: 20200405

REACTIONS (6)
  - Oral blood blister [Unknown]
  - Atrial fibrillation [Unknown]
  - Contusion [Recovering/Resolving]
  - Platelet count decreased [Recovering/Resolving]
  - Petechiae [Recovering/Resolving]
  - Epistaxis [Recovered/Resolved with Sequelae]

NARRATIVE: CASE EVENT DATE: 20200403
